FAERS Safety Report 4596990-7 (Version None)
Quarter: 2005Q1

REPORT INFORMATION
  Report Type: 
  Country: None (occurrence: None)
  Receive Date: 20050228
  Receipt Date: 20050215
  Transmission Date: 20050727
  Serious: Yes (Hospitalization, Other)
  Sender: FDA-Public Use
  Company Number: 2005002395

PATIENT
  Age: 65 Year
  Sex: Female
  Weight: 62.5964 kg

DRUGS (11)
  1. CELEBREX [Suspect]
     Indication: ARTHRITIS
     Dosage: 200 MG (200 MG, 1 IN 1 D), ORAL
     Route: 048
     Dates: start: 19990629, end: 20041221
  2. CELEBREX [Suspect]
     Indication: OSTEOARTHRITIS
     Dosage: 200 MG (200 MG, 1 IN 1 D), ORAL
     Route: 048
     Dates: start: 19990629, end: 20041221
  3. BETA BLOCKING AGENTS (BETA BLOCKING AGENTS) [Suspect]
     Indication: ILL-DEFINED DISORDER
  4. ANTIHYPERTENSIVES (ANTIHYPERTENSIVES) [Concomitant]
  5. NIFEDIPINE [Concomitant]
  6. LISINOPRIL [Concomitant]
  7. CILOSTAZOL [Concomitant]
  8. GABAPENTIN [Concomitant]
  9. SIMVASTATIN [Concomitant]
  10. LANSOPRAZOLE [Concomitant]
  11. ASPIRIN [Concomitant]

REACTIONS (11)
  - ABASIA [None]
  - ADVERSE EVENT [None]
  - HEART RATE IRREGULAR [None]
  - INADEQUATE ANALGESIA [None]
  - MUSCLE SPASMS [None]
  - MUSCULOSKELETAL PAIN [None]
  - PAIN IN EXTREMITY [None]
  - SICK SINUS SYNDROME [None]
  - TENDERNESS [None]
  - THINKING ABNORMAL [None]
  - VASCULAR OCCLUSION [None]
